FAERS Safety Report 6696169-9 (Version None)
Quarter: 2010Q2

REPORT INFORMATION
  Report Type: 
  Country: None (occurrence: None)
  Receive Date: 20100426
  Receipt Date: 20091119
  Transmission Date: 20101027
  Serious: No
  Sender: FDA-Public Use
  Company Number: A0818138A

PATIENT
  Age: 45 Year
  Sex: Female

DRUGS (2)
  1. AMERGE [Suspect]
     Indication: MIGRAINE
     Dosage: 1.75MG TWICE PER DAY
     Route: 048
     Dates: start: 20091117
  2. TOPAMAX [Concomitant]

REACTIONS (1)
  - NAUSEA [None]
